FAERS Safety Report 6926334-4 (Version None)
Quarter: 2010Q3

REPORT INFORMATION
  Report Type: 
  Country: None (occurrence: None)
  Receive Date: 20100816
  Receipt Date: 20100628
  Transmission Date: 20110219
  Serious: No
  Sender: FDA-Public Use
  Company Number: US-BAYER-201026099NA

PATIENT
  Sex: Female

DRUGS (1)
  1. MIRENA [Suspect]
     Indication: PRODUCT USED FOR UNKNOWN INDICATION
     Route: 015
     Dates: start: 20090101

REACTIONS (5)
  - ABDOMINAL DISTENSION [None]
  - DEVICE DISLOCATION [None]
  - NAUSEA [None]
  - PREGNANCY WITH CONTRACEPTIVE DEVICE [None]
  - VAGINAL HAEMORRHAGE [None]
